FAERS Safety Report 11891871 (Version 16)
Quarter: 2016Q3

REPORT INFORMATION
  Report Type: Report from Study
  Country: US (occurrence: US)
  Receive Date: 20160106
  Receipt Date: 20160926
  Transmission Date: 20161109
  Serious: Yes (Hospitalization)
  Sender: FDA-Public Use
  Company Number: US-ACTELION-A-US2015-128844

PATIENT
  Age: 74 Year
  Sex: Female

DRUGS (19)
  1. VELETRI [Suspect]
     Active Substance: EPOPROSTENOL
     Indication: PULMONARY ARTERIAL HYPERTENSION
     Dosage: 8 NG/KG, PER MIN
     Route: 042
     Dates: start: 20151119
  2. VELETRI [Suspect]
     Active Substance: EPOPROSTENOL
     Dosage: 13 NG/KG, PER MIN
     Route: 042
  3. LISINOPRIL. [Concomitant]
     Active Substance: LISINOPRIL
     Dosage: 10 MG, QD
     Route: 048
  4. LASIX [Concomitant]
     Active Substance: FUROSEMIDE
     Dosage: 20 MG, QD
     Route: 048
  5. ATORVASTATIN [Concomitant]
     Active Substance: ATORVASTATIN
     Dosage: 20 MG, QD
     Route: 048
  6. ADCIRCA [Concomitant]
     Active Substance: TADALAFIL
  7. PLAVIX [Concomitant]
     Active Substance: CLOPIDOGREL BISULFATE
     Dosage: 75 MG, QD
     Route: 048
  8. MAGNESIUM OXIDE. [Concomitant]
     Active Substance: MAGNESIUM OXIDE
     Dosage: 400 MG, QD
     Route: 048
  9. WARFARIN [Suspect]
     Active Substance: WARFARIN
     Indication: ATRIAL FIBRILLATION
     Dosage: 2.5 MG, UNK
     Route: 048
  10. SPIRONOLACTONE. [Concomitant]
     Active Substance: SPIRONOLACTONE
     Dosage: 25 MG, QD
     Route: 048
  11. OXYGEN. [Concomitant]
     Active Substance: OXYGEN
     Dosage: 1.5 L/MIN, UNK
  12. CARVEDILOL. [Concomitant]
     Active Substance: CARVEDILOL
     Dosage: 12.5 MG, BID
     Dates: end: 20151228
  13. VELETRI [Suspect]
     Active Substance: EPOPROSTENOL
     Dosage: 11 NG/KG, PER MIN
     Route: 042
  14. LEVOTHYROXINE. [Concomitant]
     Active Substance: LEVOTHYROXINE
     Dosage: 100 MCG, QD
     Route: 048
  15. OMEPRAZOLE. [Concomitant]
     Active Substance: OMEPRAZOLE
     Dosage: 20 MG, UNK
     Route: 048
  16. LEVOTHYROXINE. [Concomitant]
     Active Substance: LEVOTHYROXINE
     Dosage: 125 MCG, QD
     Route: 048
  17. ASPIRIN. [Concomitant]
     Active Substance: ASPIRIN
     Dosage: 81 MG, UNK
  18. AMIODARONE [Concomitant]
     Active Substance: AMIODARONE
     Indication: ARRHYTHMIA
     Dosage: 200 MG, QD
     Route: 048
     Dates: start: 20151223
  19. LASIX [Concomitant]
     Active Substance: FUROSEMIDE
     Dosage: UNK
     Route: 042

REACTIONS (47)
  - Dizziness [Unknown]
  - Decreased appetite [Unknown]
  - Presyncope [Unknown]
  - Skin irritation [Unknown]
  - Tooth loss [Unknown]
  - Catheter site inflammation [Unknown]
  - Syncope [Unknown]
  - Fall [Unknown]
  - White blood cell count increased [Unknown]
  - Patient dissatisfaction with treatment [Unknown]
  - Unevaluable event [Unknown]
  - Productive cough [Unknown]
  - Insomnia [Unknown]
  - Infection [Unknown]
  - Catheter site pain [Unknown]
  - Device connection issue [Recovered/Resolved]
  - Cardiac pacemaker insertion [Unknown]
  - Muscle spasms [Unknown]
  - Pain in jaw [Recovered/Resolved]
  - Hypotension [Unknown]
  - Fluid retention [Unknown]
  - Flushing [Recovered/Resolved]
  - Peripheral coldness [Unknown]
  - Depression [Unknown]
  - Catheter site pruritus [Unknown]
  - Diarrhoea [Unknown]
  - Rash [Unknown]
  - Anxiety [Unknown]
  - Oxygen saturation decreased [Unknown]
  - Condition aggravated [Unknown]
  - Cardiac arrest [Recovered/Resolved]
  - Syncope [Unknown]
  - Left ventricular failure [Unknown]
  - Arrhythmia [Recovered/Resolved]
  - Gastrointestinal arteriovenous malformation [Recovered/Resolved]
  - Small intestinal haemorrhage [Recovered/Resolved]
  - Cyanosis [Recovering/Resolving]
  - Medical device change [Recovered/Resolved]
  - Pruritus generalised [Unknown]
  - Catheter site rash [Recovered/Resolved]
  - Catheter site erythema [Recovered/Resolved]
  - Nausea [Unknown]
  - Chest pain [Unknown]
  - Epistaxis [Unknown]
  - Mood swings [Unknown]
  - Dermatitis contact [Unknown]
  - Device leakage [Unknown]

NARRATIVE: CASE EVENT DATE: 201511
